FAERS Safety Report 8249379-3 (Version None)
Quarter: 2012Q1

REPORT INFORMATION
  Report Type: 
  Country: None (occurrence: None)
  Receive Date: 20120320
  Receipt Date: 20120309
  Transmission Date: 20120608
  Serious: Yes (Other)
  Sender: FDA-Public Use
  Company Number: 2012031608

PATIENT
  Age: 33 Year
  Sex: Female
  Weight: 96.1626 kg

DRUGS (22)
  1. ELMIRON [Concomitant]
  2. NASACORT [Concomitant]
  3. PROVENTIL [Concomitant]
  4. METOPROLOL TARTRATE [Concomitant]
  5. AMBIEN [Concomitant]
  6. GABAPENTIN [Concomitant]
  7. CLONAZEPAM [Concomitant]
  8. VAGIFEM [Concomitant]
  9. DOXEPIN HCL [Concomitant]
  10. DUONEB [Concomitant]
  11. DETROL [Concomitant]
  12. PATANASE [Concomitant]
  13. TRAMADOL HCL [Concomitant]
  14. MELATONIN (MELATONIN) [Concomitant]
  15. LEVOTHYROXINE SODIUM [Concomitant]
  16. LIPITOR [Concomitant]
  17. ZYRTEC [Concomitant]
  18. ELESTAT (EPINASTINE HYDROCHLORIDE) [Concomitant]
  19. ONE A DAY (ACCOMIN MULTIVITAMIN) [Concomitant]
  20. HIZENTRA [Suspect]
     Indication: IMMUNODEFICIENCY COMMON VARIABLE
     Dosage: (16 G 1X/WEEK, 4 GM 20 ML VIAL; 80 ML IN 4 SITES OVER 1 HOUR SUBCUTANEOUS)
     Route: 058
     Dates: start: 20100819
  21. CYMBALTA [Concomitant]
  22. BUSPAR [Concomitant]

REACTIONS (1)
  - URINARY TRACT INFECTION [None]
